FAERS Safety Report 7068493-1 (Version None)
Quarter: 2010Q4

REPORT INFORMATION
  Report Type: 
  Country: None (occurrence: None)
  Receive Date: 20101028
  Receipt Date: 20101021
  Transmission Date: 20110411
  Serious: Yes (Other)
  Sender: FDA-Public Use
  Company Number: GB-JNJFOC-20101006345

PATIENT
  Age: 15 Year
  Sex: Female

DRUGS (1)
  1. CO-CODAMOL [Suspect]
     Indication: PRODUCT USED FOR UNKNOWN INDICATION
     Dosage: 1 DOSAGE FORM
     Route: 048

REACTIONS (6)
  - ANAPHYLACTIC REACTION [None]
  - DIZZINESS [None]
  - DYSPNOEA [None]
  - INTENTIONAL DRUG MISUSE [None]
  - STRIDOR [None]
  - TACHYPNOEA [None]
